FAERS Safety Report 20668464 (Version 2)
Quarter: 2022Q3

REPORT INFORMATION
  Report Type: Report from Study
  Country: CA (occurrence: CA)
  Receive Date: 20220404
  Receipt Date: 20220805
  Transmission Date: 20221027
  Serious: Yes (Death, Hospitalization, Other)
  Sender: FDA-Public Use
  Company Number: CA-TAKEDA-2022TUS020198

PATIENT
  Age: 80 Year
  Sex: Male

DRUGS (13)
  1. HUMAN IMMUNOGLOBULIN G [Suspect]
     Active Substance: HUMAN IMMUNOGLOBULIN G
     Indication: Primary immunodeficiency syndrome
     Dosage: 8 GRAM, 1/WEEK
     Route: 058
     Dates: start: 20220224
  2. IRON [Concomitant]
     Active Substance: IRON
  3. SPIRIVA [Concomitant]
     Active Substance: TIOTROPIUM BROMIDE MONOHYDRATE
  4. SYMBICORT [Concomitant]
     Active Substance: BUDESONIDE\FORMOTEROL FUMARATE DIHYDRATE
  5. ALVESCO [Concomitant]
     Active Substance: CICLESONIDE
  6. ACTONEL [Concomitant]
     Active Substance: RISEDRONATE SODIUM
  7. EZETIMIBE [Concomitant]
     Active Substance: EZETIMIBE
  8. PERINDOPRIL ERBUMINE [Concomitant]
     Active Substance: PERINDOPRIL ERBUMINE
  9. AMLODIPINE [Concomitant]
     Active Substance: AMLODIPINE BESYLATE
  10. ROSUVASTATIN [Concomitant]
     Active Substance: ROSUVASTATIN
  11. MONTELUKAST [Concomitant]
     Active Substance: MONTELUKAST SODIUM
  12. FARXIGA [Concomitant]
     Active Substance: DAPAGLIFLOZIN PROPANEDIOL
  13. METFORMIN [Concomitant]
     Active Substance: METFORMIN HYDROCHLORIDE

REACTIONS (5)
  - Death [Fatal]
  - Pneumonia [Recovered/Resolved]
  - Infusion related reaction [Unknown]
  - General physical health deterioration [Not Recovered/Not Resolved]
  - Memory impairment [Not Recovered/Not Resolved]

NARRATIVE: CASE EVENT DATE: 20220322
